FAERS Safety Report 23409809 (Version 8)
Quarter: 2025Q2

REPORT INFORMATION
  Report Type: Spontaneous
  Country: US (occurrence: US)
  Receive Date: 20240117
  Receipt Date: 20250428
  Transmission Date: 20250717
  Serious: No
  Sender: PFIZER
  Company Number: US-PFIZER INC-PV202300025971

PATIENT
  Age: 71 Year
  Sex: Female

DRUGS (2)
  1. EUCRISA [Suspect]
     Active Substance: CRISABOROLE
     Indication: Rash
     Dosage: APPLY TO ERUPTION ON FACE EVERY DAY AS DIRECTED BY PHYSICIAN
     Route: 061
  2. EUCRISA [Suspect]
     Active Substance: CRISABOROLE
     Indication: Dermatitis
     Dosage: APPLY TO ERUPTION ON FACE EVERY DAY AS DIRECTED BY PHYSICIAN
     Route: 061

REACTIONS (3)
  - Illness [Unknown]
  - Skin disorder [Unknown]
  - Off label use [Unknown]
